FAERS Safety Report 23039821 (Version 1)
Quarter: 2023Q4

REPORT INFORMATION
  Report Type: Spontaneous
  Country: IT (occurrence: IT)
  Receive Date: 20231006
  Receipt Date: 20231006
  Transmission Date: 20240109
  Serious: Yes (Life-Threatening, Other)
  Sender: FDA-Public Use
  Company Number: None

PATIENT
  Age: 60 Year
  Sex: Female
  Weight: 63 kg

DRUGS (5)
  1. PACLITAXEL [Suspect]
     Active Substance: PACLITAXEL
     Indication: Breast cancer
     Dosage: SOLUTION FOR INFUSION, PDF-11210000, ROA-20045000, NASK
     Route: 042
     Dates: start: 20230809, end: 20230824
  2. KEYTRUDA [Suspect]
     Active Substance: PEMBROLIZUMAB
     Indication: Breast cancer
     Dosage: ROA-20045000, PDF-11213000, CONCENTRATE FOR SOLUTION FOR INFUSION, NASK
     Route: 042
     Dates: start: 20230809
  3. CARBOPLATIN [Suspect]
     Active Substance: CARBOPLATIN
     Indication: Breast cancer
     Dosage: SOLUTION FOR INFUSION, ROA-20045000, PDF-11210000
     Route: 042
     Dates: start: 20230809, end: 20230824
  4. BISOPROLOLO EG [Concomitant]
     Indication: Cardiac failure
  5. VALSARTAN DOC GENERICI [Concomitant]
     Indication: Cardiac failure

REACTIONS (1)
  - Hepatitis acute [Recovered/Resolved with Sequelae]

NARRATIVE: CASE EVENT DATE: 20230830
